FAERS Safety Report 6433494-0 (Version None)
Quarter: 2009Q4

REPORT INFORMATION
  Report Type: 
  Country: None (occurrence: None)
  Receive Date: 20091106
  Receipt Date: 20091106
  Transmission Date: 20100525
  Serious: No
  Sender: FDA-Public Use
  Company Number: None

PATIENT
  Sex: Female
  Weight: 65 kg

DRUGS (1)
  1. RITUXAN [Suspect]
     Indication: SYSTEMIC LUPUS ERYTHEMATOSUS
     Dosage: 1000 MG ONE TIME ONLY IV
     Route: 042
     Dates: start: 20091001, end: 20091001

REACTIONS (2)
  - EYE PRURITUS [None]
  - PERIORBITAL OEDEMA [None]
